FAERS Safety Report 9205337 (Version 1)
Quarter: 2013Q2

REPORT INFORMATION
  Report Type: Spontaneous
  Country: IT (occurrence: IT)
  Receive Date: 20130402
  Receipt Date: 20130402
  Transmission Date: 20140414
  Serious: Yes (Other)
  Sender: FDA-Public Use
  Company Number: IT-PFIZER INC-2013101325

PATIENT
  Age: 44 Year
  Sex: Male

DRUGS (6)
  1. XANAX [Suspect]
     Indication: ANXIETY
     Dosage: 14 GTT, UNK
     Route: 048
     Dates: start: 201302, end: 2013
  2. XANAX [Suspect]
     Dosage: 12 GTT, UNK
     Route: 048
     Dates: start: 2013, end: 2013
  3. XANAX [Suspect]
     Dosage: 10 GTT, UNK
     Route: 048
     Dates: start: 2013, end: 2013
  4. XANAX [Suspect]
     Dosage: 8 GTT, UNK
     Route: 048
     Dates: start: 2013, end: 2013
  5. XANAX [Suspect]
     Dosage: 6 GTT, UNK
     Route: 048
     Dates: start: 2013, end: 2013
  6. XANAX [Suspect]
     Dosage: 5 GTT, UNK
     Route: 048
     Dates: start: 2013, end: 2013

REACTIONS (2)
  - Hypertension [Recovered/Resolved]
  - Hypotension [Unknown]
